FAERS Safety Report 6195755-2 (Version None)
Quarter: 2009Q2

REPORT INFORMATION
  Report Type: 
  Country: None (occurrence: None)
  Receive Date: 20090520
  Receipt Date: 20090506
  Transmission Date: 20091009
  Serious: Yes (Death)
  Sender: FDA-Public Use
  Company Number: DE-RANBAXY-2009RR-23985

PATIENT
  Age: 68 Year
  Sex: Male

DRUGS (1)
  1. VERATIDE [Suspect]
     Indication: HYPERTENSION
     Dosage: UNK
     Route: 048

REACTIONS (3)
  - HYPERTONIA [None]
  - SOMNOLENCE [None]
  - SYNCOPE [None]
